FAERS Safety Report 8278568-7 (Version None)
Quarter: 2012Q2

REPORT INFORMATION
  Report Type: 
  Country: None (occurrence: None)
  Receive Date: 20120412
  Receipt Date: 20110524
  Transmission Date: 20120825
  Serious: No
  Sender: FDA-Public Use
  Company Number: US-ASTRAZENECA-2010SE56776

PATIENT
  Age: 65 Year
  Sex: Male
  Weight: 120.2 kg

DRUGS (2)
  1. NEXIUM [Suspect]
     Route: 048
  2. NEXIUM [Suspect]
     Route: 048

REACTIONS (5)
  - GASTROINTESTINAL PAIN [None]
  - DIARRHOEA [None]
  - ABDOMINAL DISCOMFORT [None]
  - DYSGEUSIA [None]
  - ABDOMINAL PAIN UPPER [None]
